FAERS Safety Report 4852038-8 (Version None)
Quarter: 2005Q4

REPORT INFORMATION
  Report Type: 
  Country: None (occurrence: None)
  Receive Date: 20051212
  Receipt Date: 20051212
  Transmission Date: 20060501
  Serious: Yes (Death)
  Sender: FDA-Public Use
  Company Number: None

PATIENT
  Age: 38 Year
  Sex: Female
  Weight: 61.4 kg

DRUGS (16)
  1. TARCEVA [Suspect]
     Indication: MESOTHELIOMA
     Dosage: 150 MG PO QD
     Route: 048
     Dates: start: 20050906, end: 20051103
  2. BEVACIZUMAB [Suspect]
     Indication: MESOTHELIOMA
     Dosage: 1011 MG IV Q 3 WEEKS
     Route: 042
     Dates: start: 20050906
  3. BEVACIZUMAB [Suspect]
     Indication: MESOTHELIOMA
     Dosage: 1011 MG IV Q 3 WEEKS
     Route: 042
     Dates: start: 20051014
  4. ALDACTONE [Concomitant]
  5. ATIVAN [Concomitant]
  6. COMPAZINE [Concomitant]
  7. DEXAMETHASONE ELIXER [Concomitant]
  8. ELIDEL [Concomitant]
  9. LEXAPRO [Concomitant]
  10. MINOCYCLINE [Concomitant]
  11. OXYCODONE [Concomitant]
  12. OXYCONTIN [Concomitant]
  13. RITALIN [Concomitant]
  14. ROBITUSSIN [Concomitant]
  15. TRIAMCINOLONE ACETONIDE [Concomitant]
  16. ZOFRAN [Concomitant]

REACTIONS (4)
  - CONFUSIONAL STATE [None]
  - DISEASE PROGRESSION [None]
  - DISORIENTATION [None]
  - DYSPNOEA EXACERBATED [None]
